FAERS Safety Report 5233603-5 (Version None)
Quarter: 2007Q1

REPORT INFORMATION
  Report Type: 
  Country: None (occurrence: None)
  Receive Date: 20061208
  Receipt Date: 20060314
  Transmission Date: 20070707
  Serious: Yes (Other)
  Sender: FDA-Public Use
  Company Number: 2006UW04356

PATIENT
  Age: 60 Year
  Sex: Female

DRUGS (3)
  1. TOPROL-XL [Suspect]
     Dosage: 50 MG PO
     Route: 048
  2. CRESTOR [Suspect]
     Dosage: 2.5 MG PO
     Route: 048
  3. CRESTOR [Suspect]
     Dosage: 1.25 MG PO
     Route: 048

REACTIONS (1)
  - BLOOD PRESSURE INCREASED [None]
